FAERS Safety Report 5340442-3 (Version None)
Quarter: 2007Q2

REPORT INFORMATION
  Report Type: 
  Country: None (occurrence: None)
  Receive Date: 20070531
  Receipt Date: 20070524
  Transmission Date: 20071010
  Serious: Yes (Hospitalization)
  Sender: FDA-Public Use
  Company Number: US-JNJFOC-20070506617

PATIENT
  Sex: Male
  Weight: 147.42 kg

DRUGS (15)
  1. DURAGESIC-100 [Suspect]
     Route: 062
  2. DURAGESIC-100 [Suspect]
     Indication: PAIN
     Dosage: 100 UG/HR AND 25 UG/HR
     Route: 062
  3. NEURONTIN [Concomitant]
     Route: 048
  4. SINGULAIR [Concomitant]
     Indication: MULTIPLE ALLERGIES
     Route: 048
  5. REQUIP [Concomitant]
     Indication: RESTLESS LEGS SYNDROME
     Route: 048
  6. AVANDIA [Concomitant]
     Route: 048
  7. PREDNISONE TAB [Concomitant]
     Route: 048
  8. ZETIA [Concomitant]
     Indication: BLOOD CHOLESTEROL INCREASED
     Route: 048
  9. SANCTURA [Concomitant]
     Indication: URINARY INCONTINENCE
     Route: 048
  10. CYMBALTA [Concomitant]
     Indication: DEPRESSION
     Route: 048
  11. CELEBREX [Concomitant]
     Route: 048
  12. VICOPROFEN [Concomitant]
     Indication: BREAKTHROUGH PAIN
     Route: 048
  13. LISINOPRIL [Concomitant]
     Indication: HYPERTENSION
     Route: 048
  14. BONIVA [Concomitant]
     Indication: RESORPTION BONE INCREASED
     Route: 048
  15. PREVACID [Concomitant]
     Route: 048

REACTIONS (2)
  - GANGRENE [None]
  - SOMNOLENCE [None]
